FAERS Safety Report 18847074 (Version 1)
Quarter: 2021Q1

REPORT INFORMATION
  Report Type: Spontaneous
  Country: JP (occurrence: JP)
  Receive Date: 20210204
  Receipt Date: 20210204
  Transmission Date: 20210419
  Serious: Yes (Hospitalization)
  Sender: FDA-Public Use
  Company Number: JP-009507513-2102JPN001473

PATIENT
  Age: 68 Year
  Sex: Female
  Weight: 50 kg

DRUGS (3)
  1. JANUVIA [Suspect]
     Active Substance: SITAGLIPTIN PHOSPHATE
     Indication: PRODUCT USED FOR UNKNOWN INDICATION
     Dosage: DOSAGE FORM: UNSPECIFIED
     Route: 048
     Dates: start: 20180305, end: 20180521
  2. CANAGLU [Suspect]
     Active Substance: CANAGLIFLOZIN
     Indication: DIABETES MELLITUS
     Dosage: 100 MILLIGRAM, QD
     Route: 048
     Dates: start: 20180514, end: 20180521
  3. CANAGLU [Suspect]
     Active Substance: CANAGLIFLOZIN
     Dosage: UNK
     Route: 048

REACTIONS (5)
  - Thirst [Unknown]
  - Acute myocardial infarction [Recovering/Resolving]
  - Dehydration [Unknown]
  - Malaise [Unknown]
  - Polyuria [Unknown]

NARRATIVE: CASE EVENT DATE: 201805
